FAERS Safety Report 16771982 (Version 5)
Quarter: 2022Q4

REPORT INFORMATION
  Report Type: Spontaneous
  Country: US (occurrence: US)
  Receive Date: 20190904
  Receipt Date: 20221003
  Transmission Date: 20230112
  Serious: Yes (Hospitalization, Other)
  Sender: FDA-Public Use
  Company Number: US-PFIZER INC-2019374507

PATIENT
  Age: 74 Year
  Sex: Female
  Weight: 54.43 kg

DRUGS (4)
  1. XELJANZ XR [Suspect]
     Active Substance: TOFACITINIB CITRATE
     Indication: Rheumatoid arthritis
     Dosage: 11 MG, 1X/DAY
     Route: 048
     Dates: start: 201812
  2. XELJANZ XR [Suspect]
     Active Substance: TOFACITINIB CITRATE
     Dosage: 11 MG, 1X/DAY
     Route: 048
  3. XELJANZ XR [Suspect]
     Active Substance: TOFACITINIB CITRATE
     Dosage: 11 MG, 1X/DAY
     Route: 048
  4. XELJANZ XR [Suspect]
     Active Substance: TOFACITINIB CITRATE
     Dosage: 11 MG, 1X/DAY
     Route: 048

REACTIONS (12)
  - Pneumonia [Unknown]
  - Road traffic accident [Recovered/Resolved]
  - Skin discolouration [Recovered/Resolved]
  - Contusion [Recovered/Resolved]
  - Upper limb fracture [Recovered/Resolved]
  - Illness [Unknown]
  - Blood sodium decreased [Unknown]
  - Limb injury [Recovered/Resolved]
  - Pain [Recovered/Resolved]
  - Viral infection [Unknown]
  - Decreased immune responsiveness [Unknown]
  - Chest pain [Unknown]

NARRATIVE: CASE EVENT DATE: 20190601
